FAERS Safety Report 9382485 (Version 1)
Quarter: 2013Q3

REPORT INFORMATION
  Report Type: Spontaneous
  Country: US (occurrence: US)
  Receive Date: 20130703
  Receipt Date: 20130703
  Transmission Date: 20140515
  Serious: Yes (Hospitalization)
  Sender: FDA-Public Use
  Company Number: US-GLAXOSMITHKLINE-A0837613A

PATIENT
  Age: 47 Year
  Sex: Male

DRUGS (14)
  1. AVANDIA [Suspect]
     Indication: DIABETES MELLITUS
     Dosage: 8MG UNKNOWN
     Route: 048
     Dates: start: 2003, end: 2009
  2. AVANDAMET [Suspect]
     Indication: DIABETES MELLITUS
     Route: 048
  3. ASPIRIN [Concomitant]
  4. COLACE [Concomitant]
  5. DARVOCET [Concomitant]
  6. ZETIA [Concomitant]
  7. GLUCOPHAGE [Concomitant]
  8. TOPROL XL [Concomitant]
  9. PAXIL [Concomitant]
  10. PREVACID [Concomitant]
  11. LISINOPRIL [Concomitant]
  12. HYDROCHLOROTHIAZIDE [Concomitant]
  13. TRICOR [Concomitant]
  14. LIPITOR [Concomitant]

REACTIONS (1)
  - Myocardial infarction [Not Recovered/Not Resolved]
